FAERS Safety Report 8142369 (Version 4)
Quarter: 2013Q1

REPORT INFORMATION
  Report Type: Report from Study
  Country: US (occurrence: US)
  Receive Date: 20110919
  Receipt Date: 20130205
  Transmission Date: 20140127
  Serious: Yes (Hospitalization, Other)
  Sender: FDA-Public Use
  Company Number: US-UCBSA-040937

PATIENT
  Age: 26 Year
  Sex: Female
  Weight: 107.5 kg

DRUGS (7)
  1. CERTOLIZUMAB PEGOL [Suspect]
     Indication: RHEUMATOID ARTHRITIS
     Route: 058
     Dates: start: 20110712, end: 20110829
  2. SULFASALAZINE [Concomitant]
     Indication: ARTHRITIS
     Route: 048
     Dates: start: 20110222
  3. ETODOLAC [Concomitant]
     Indication: ARTHRITIS
     Route: 048
     Dates: start: 201101
  4. TYLENOL [Concomitant]
     Indication: ARTHRALGIA
     Route: 048
     Dates: start: 201105
  5. PERCOCET [Concomitant]
     Indication: PROCEDURAL PAIN
     Dosage: DOSE: 5/325 MG PRN
     Route: 048
     Dates: start: 20110810, end: 20110812
  6. PRENATAL VITAMINS [Concomitant]
  7. VALTREX [Concomitant]
     Indication: HERPES SIMPLEX

REACTIONS (1)
  - Pregnancy on contraceptive [Recovered/Resolved]
